FAERS Safety Report 9861936 (Version 2)
Quarter: 2014Q1

REPORT INFORMATION
  Report Type: Spontaneous
  Country: DE (occurrence: DE)
  Receive Date: 20140203
  Receipt Date: 20140213
  Transmission Date: 20141002
  Serious: Yes (Other)
  Sender: FDA-Public Use
  Company Number: DE-DRREDDYS-GER/GER/14/0037607

PATIENT
  Age: 67 Year
  Sex: Male
  Weight: 87 kg

DRUGS (6)
  1. SIMVABETA 40 MG FILMTABLETTEN [Suspect]
     Indication: HYPERCHOLESTEROLAEMIA
     Route: 048
     Dates: start: 2006, end: 2014
  2. SIMVABETA 40 MG FILMTABLETTEN [Suspect]
     Indication: BLOOD TRIGLYCERIDES INCREASED
  3. MARCUMAR [Concomitant]
     Indication: PRODUCT USED FOR UNKNOWN INDICATION
  4. PANTOPRAZOLE [Concomitant]
     Indication: PRODUCT USED FOR UNKNOWN INDICATION
  5. METOPROLOL [Concomitant]
     Indication: PRODUCT USED FOR UNKNOWN INDICATION
  6. RANEXA [Concomitant]
     Indication: PRODUCT USED FOR UNKNOWN INDICATION

REACTIONS (2)
  - Muscle rupture [Not Recovered/Not Resolved]
  - Myalgia [Not Recovered/Not Resolved]
